FAERS Safety Report 6753669-0 (Version None)
Quarter: 2010Q2

REPORT INFORMATION
  Report Type: 
  Country: None (occurrence: None)
  Receive Date: 20100603
  Receipt Date: 20100531
  Transmission Date: 20101027
  Serious: Yes (Hospitalization)
  Sender: FDA-Public Use
  Company Number: CA-ROCHE-675958

PATIENT
  Sex: Female

DRUGS (2)
  1. XELODA [Suspect]
     Route: 048
     Dates: start: 20090101, end: 20091201
  2. AVASTIN [Suspect]
     Dosage: FORM: INFUSION
     Route: 042
     Dates: start: 20070101, end: 20091215

REACTIONS (1)
  - INTESTINAL OBSTRUCTION [None]
